FAERS Safety Report 22614043 (Version 2)
Quarter: 2025Q2

REPORT INFORMATION
  Report Type: Report from Study
  Country: ES (occurrence: ES)
  Receive Date: 20230619
  Receipt Date: 20250521
  Transmission Date: 20250717
  Serious: Yes (Other)
  Sender: AUROBINDO
  Company Number: ES-LESVI-2023002431

PATIENT
  Age: 29 Year
  Sex: Male

DRUGS (1)
  1. FINASTERIDE [Suspect]
     Active Substance: FINASTERIDE
     Indication: Androgenetic alopecia
     Dosage: 1 MILLIGRAM, ONCE A DAY, 6 YEARS TREATMENT
     Route: 065

REACTIONS (4)
  - Testicular germ cell tumour mixed [Recovered/Resolved]
  - Testicular cyst [Recovered/Resolved]
  - Product use in unapproved indication [Unknown]
  - Product use issue [Unknown]
